FAERS Safety Report 5808654-X (Version None)
Quarter: 2008Q3

REPORT INFORMATION
  Report Type: 
  Country: None (occurrence: None)
  Receive Date: 20080714
  Receipt Date: 20080704
  Transmission Date: 20090109
  Serious: Yes (Hospitalization, Disabling)
  Sender: FDA-Public Use
  Company Number: FR-BRISTOL-MYERS SQUIBB COMPANY-14258594

PATIENT
  Age: 59 Year
  Sex: Male

DRUGS (3)
  1. ERBITUX [Suspect]
     Indication: COLON CANCER METASTATIC
     Route: 042
     Dates: start: 20080207, end: 20080320
  2. FLUOROURACIL [Suspect]
     Indication: COLON CANCER METASTATIC
     Dosage: FLUOROURACIL ICN DEPENDING ON CYCLE
     Route: 042
     Dates: start: 20080207, end: 20080320
  3. CAMPTOSAR [Suspect]
     Indication: COLON CANCER METASTATIC
     Dosage: 12.381MG
     Route: 042
     Dates: start: 20080207, end: 20080320

REACTIONS (3)
  - FACIAL PALSY [None]
  - HERPES ZOSTER [None]
  - MALIGNANT NEOPLASM PROGRESSION [None]
